FAERS Safety Report 25674493 (Version 1)
Quarter: 2025Q3

REPORT INFORMATION
  Report Type: Spontaneous
  Country: US (occurrence: US)
  Receive Date: 20250813
  Receipt Date: 20250813
  Transmission Date: 20251020
  Serious: Yes (Other)
  Sender: SANDOZ
  Company Number: US-SANDOZ-SDZ2025US057435

PATIENT
  Age: 54 Year
  Sex: Female

DRUGS (1)
  1. GLATOPA [Suspect]
     Active Substance: GLATIRAMER ACETATE
     Indication: Product used for unknown indication
     Route: 065

REACTIONS (3)
  - Road traffic accident [Unknown]
  - Pain [Unknown]
  - Injection site mass [Unknown]

NARRATIVE: CASE EVENT DATE: 20250806
